FAERS Safety Report 7197566-8 (Version None)
Quarter: 2010Q4

REPORT INFORMATION
  Report Type: 
  Country: None (occurrence: None)
  Receive Date: 20101227
  Receipt Date: 20101220
  Transmission Date: 20110411
  Serious: Yes (Hospitalization)
  Sender: FDA-Public Use
  Company Number: US-JNJFOC-20100510914

PATIENT
  Age: 88 Year
  Sex: Female

DRUGS (3)
  1. TYLENOL-500 [Suspect]
     Route: 048
  2. TYLENOL-500 [Suspect]
     Indication: ARTHRITIS
     Route: 048
  3. UNKNOWN MEDICATION [Suspect]
     Indication: PARKINSON'S DISEASE

REACTIONS (3)
  - DIARRHOEA [None]
  - INTESTINAL RESECTION [None]
  - PRODUCT QUALITY ISSUE [None]
